FAERS Safety Report 16242455 (Version 1)
Quarter: 2019Q2

REPORT INFORMATION
  Report Type: Spontaneous
  Country: ID (occurrence: ID)
  Receive Date: 20190426
  Receipt Date: 20190426
  Transmission Date: 20190711
  Serious: Yes (Hospitalization, Other)
  Sender: FDA-Public Use
  Company Number: ID-MICRO LABS LIMITED-ML2019-01063

PATIENT
  Age: 30 Year
  Sex: Female

DRUGS (2)
  1. CEFADROXIL. [Suspect]
     Active Substance: CEFADROXIL
  2. MEFENAMIC ACID. [Suspect]
     Active Substance: MEFENAMIC ACID
     Route: 048

REACTIONS (1)
  - Drug reaction with eosinophilia and systemic symptoms [Unknown]
